FAERS Safety Report 21878775 (Version 1)
Quarter: 2023Q1

REPORT INFORMATION
  Report Type: Spontaneous
  Country: CA (occurrence: CA)
  Receive Date: 20230118
  Receipt Date: 20230118
  Transmission Date: 20230417
  Serious: Yes (Other)
  Sender: FDA-Public Use
  Company Number: CA-PFIZER INC-202300018155

PATIENT
  Age: 31 Year
  Sex: Male

DRUGS (2)
  1. XELJANZ [Suspect]
     Active Substance: TOFACITINIB CITRATE
     Indication: Colitis ulcerative
     Dosage: 10 MG, 2X/DAY (10MG BID FOR 8 WEEKS THEN 5MG BID)
     Route: 048
     Dates: start: 20190713, end: 201910
  2. XELJANZ [Suspect]
     Active Substance: TOFACITINIB CITRATE
     Dosage: 5 MG, 2X/DAY (10MG BID FOR 8 WEEKS THEN 5MG BID)
     Route: 048
     Dates: start: 201910

REACTIONS (3)
  - Intestinal anastomosis [Recovered/Resolved]
  - Colectomy [Recovered/Resolved]
  - Drug ineffective [Unknown]
